FAERS Safety Report 9538037 (Version 1)
Quarter: 2013Q3

REPORT INFORMATION
  Report Type: Spontaneous
  Country: US (occurrence: US)
  Receive Date: 20130920
  Receipt Date: 20130920
  Transmission Date: 20140515
  Serious: Yes (Death)
  Sender: FDA-Public Use
  Company Number: US-ROCHE-1278671

PATIENT
  Sex: Female

DRUGS (7)
  1. XELODA [Suspect]
     Indication: PANCREATIC CARCINOMA
     Dosage: FOR 14 DAYS ON AND 7 DAYS OFF
     Route: 048
  2. NEXIUM [Concomitant]
  3. MORPHINE SULFATE [Concomitant]
     Dosage: EXTENDED RELEASE
     Route: 065
  4. GLIBENCLAMIDE [Concomitant]
     Route: 065
  5. PROMETHAZINE [Concomitant]
  6. LISINOPRIL [Concomitant]
  7. ZOFRAN [Concomitant]

REACTIONS (1)
  - Death [Fatal]
